FAERS Safety Report 11004838 (Version 2)
Quarter: 2015Q2

REPORT INFORMATION
  Report Type: Report from Study
  Country: IL (occurrence: IL)
  Receive Date: 20150409
  Receipt Date: 20150413
  Transmission Date: 20150821
  Serious: Yes (Hospitalization)
  Sender: FDA-Public Use
  Company Number: IL-ABBVIE-15K-082-1372432-00

PATIENT
  Age: 33 Year
  Sex: Female

DRUGS (4)
  1. PREDNISON [Concomitant]
     Active Substance: PREDNISONE
     Indication: PSORIASIS
  2. PREDNISON [Concomitant]
     Active Substance: PREDNISONE
  3. PREDNISON [Concomitant]
     Active Substance: PREDNISONE
  4. HUMIRA [Suspect]
     Active Substance: ADALIMUMAB
     Indication: PSORIASIS
     Route: 058
     Dates: start: 20140804

REACTIONS (3)
  - Psoriasis [Not Recovered/Not Resolved]
  - Ear discomfort [Unknown]
  - Ear pain [Unknown]

NARRATIVE: CASE EVENT DATE: 201502
